FAERS Safety Report 6068474-0 (Version None)
Quarter: 2009Q1

REPORT INFORMATION
  Report Type: 
  Country: None (occurrence: None)
  Receive Date: 20090206
  Receipt Date: 20090129
  Transmission Date: 20090719
  Serious: Yes (Hospitalization, Other)
  Sender: FDA-Public Use
  Company Number: FR-PFIZER INC-2009164039

PATIENT

DRUGS (2)
  1. XALATAN [Suspect]
     Indication: OCULAR HYPERTENSION
  2. AZOPT [Suspect]
     Indication: OCULAR HYPERTENSION

REACTIONS (1)
  - RESPIRATORY FAILURE [None]
